FAERS Safety Report 22232342 (Version 1)
Quarter: 2023Q2

REPORT INFORMATION
  Report Type: Spontaneous
  Country: US (occurrence: None)
  Receive Date: 20230420
  Receipt Date: 20230420
  Transmission Date: 20230722
  Serious: No
  Sender: FDA-Public Use
  Company Number: US-ROCHE-3071818

PATIENT
  Sex: Female

DRUGS (1)
  1. ESBRIET [Suspect]
     Active Substance: PIRFENIDONE
     Indication: Idiopathic pulmonary fibrosis
     Dosage: DAY 1 THROUGH 7: 1 TABLET BY MOUTH THREE TIMES A DAY WITH MEALS DAY 8 THROUGH 14: 2TABLETS BY MOUTH
     Route: 048

REACTIONS (1)
  - Fatigue [Unknown]
